APPROVED DRUG PRODUCT: LORAZEPAM
Active Ingredient: LORAZEPAM
Strength: 4MG/ML
Dosage Form/Route: INJECTABLE;INJECTION
Application: A074793 | Product #002
Applicant: PH HEALTH LTD
Approved: Mar 16, 2000 | RLD: No | RS: No | Type: DISCN